FAERS Safety Report 7994818-6 (Version None)
Quarter: 2011Q4

REPORT INFORMATION
  Report Type: 
  Country: None (occurrence: None)
  Receive Date: 20111220
  Receipt Date: 20111214
  Transmission Date: 20120403
  Serious: Yes (Hospitalization, Other)
  Sender: FDA-Public Use
  Company Number: AU-B.I. PHARMACEUTICALS,INC./RIDGEFIELD-2011-AU-02145AU

PATIENT
  Sex: Female
  Weight: 58 kg

DRUGS (6)
  1. FLUTICASONE PROPIONATE [Concomitant]
     Dosage: 250 MG
     Route: 055
  2. SOTALOL HCL [Concomitant]
     Dosage: 80 MG
  3. FUROSEMIDE [Concomitant]
     Dosage: 40 MG
  4. METFORMIN HCL [Concomitant]
     Dosage: 1000 MG
  5. PRADAXA [Suspect]
     Indication: ATRIAL FIBRILLATION
     Dosage: 300 MG
     Dates: start: 20111017, end: 20111019
  6. IRBESARTAN [Concomitant]
     Dosage: 300 MG

REACTIONS (2)
  - GASTROINTESTINAL HAEMORRHAGE [None]
  - COLON CANCER [None]
